FAERS Safety Report 19574660 (Version 1)
Quarter: 2021Q3

REPORT INFORMATION
  Report Type: Spontaneous
  Country: US (occurrence: US)
  Receive Date: 20210719
  Receipt Date: 20210719
  Transmission Date: 20211014
  Serious: No
  Sender: FDA-Public Use
  Company Number: US-AUROBINDO-AUR-APL-2021-015395

PATIENT
  Sex: Male

DRUGS (1)
  1. ATOMOXETINE CAPSULES USP 40 MG [Suspect]
     Active Substance: ATOMOXETINE
     Indication: PRODUCT USED FOR UNKNOWN INDICATION
     Dosage: UNK, DAILY
     Route: 048
     Dates: start: 20210407

REACTIONS (7)
  - Product substitution issue [Unknown]
  - Hypersensitivity [Unknown]
  - Feeling hot [Unknown]
  - Nausea [Unknown]
  - Throat irritation [Unknown]
  - Hyperhidrosis [Unknown]
  - Wrong technique in product usage process [Unknown]

NARRATIVE: CASE EVENT DATE: 20210407
